FAERS Safety Report 5675300-8 (Version None)
Quarter: 2008Q2

REPORT INFORMATION
  Report Type: 
  Country: None (occurrence: None)
  Receive Date: 20080307
  Receipt Date: 20071018
  Transmission Date: 20081010
  Serious: Yes (Hospitalization)
  Sender: FDA-Public Use
  Company Number: US200710004949

PATIENT
  Age: 60 Year
  Sex: Male

DRUGS (1)
  1. GEMZAR [Suspect]
     Indication: T-CELL LYMPHOMA
     Dosage: 800 MG, INTRAVENOUS
     Route: 042
     Dates: start: 20070918, end: 20070101

REACTIONS (1)
  - PULMONARY TOXICITY [None]
